FAERS Safety Report 5896596-3 (Version None)
Quarter: 2008Q3

REPORT INFORMATION
  Report Type: 
  Country: None (occurrence: None)
  Receive Date: 20080924
  Receipt Date: 20071001
  Transmission Date: 20090109
  Serious: Yes (Other)
  Sender: FDA-Public Use
  Company Number: US-BAYER-200712845BWH

PATIENT
  Age: 37 Year
  Sex: Male

DRUGS (2)
  1. AVELOX [Suspect]
     Indication: SINUSITIS
     Dosage: TOTAL DAILY DOSE: 400 MG  UNIT DOSE: 400 MG
     Route: 048
     Dates: start: 20070819, end: 20070819
  2. AVELOX [Suspect]
     Dates: start: 20050901

REACTIONS (11)
  - ANAPHYLACTIC REACTION [None]
  - CHILLS [None]
  - DYSPNOEA [None]
  - EAR DISCOMFORT [None]
  - GENERALISED ERYTHEMA [None]
  - HEADACHE [None]
  - PRURITUS [None]
  - RASH [None]
  - SKIN BURNING SENSATION [None]
  - URTICARIA [None]
  - VOMITING [None]
